FAERS Safety Report 10727887 (Version 2)
Quarter: 2015Q1

REPORT INFORMATION
  Report Type: Report from Study
  Country: AU (occurrence: AU)
  Receive Date: 20150121
  Receipt Date: 20150204
  Transmission Date: 20150721
  Serious: No
  Sender: FDA-Public Use
  Company Number: AU-ABBVIE-12P-008-0926748-02

PATIENT
  Age: 30 Year
  Sex: Female
  Weight: 43 kg

DRUGS (25)
  1. PREDNISONE. [Concomitant]
     Active Substance: PREDNISONE
     Dates: start: 20100318, end: 20100331
  2. PREDNISONE. [Concomitant]
     Active Substance: PREDNISONE
     Dates: start: 20100408, end: 20100414
  3. CALTRATE [Concomitant]
     Active Substance: CALCIUM CARBONATE
     Indication: OSTEOPOROSIS
     Dates: start: 20100303
  4. OSTELIN VITAMIN D [Concomitant]
     Indication: OSTEOPOROSIS PROPHYLAXIS
  5. OMEPRAZOLE. [Concomitant]
     Active Substance: OMEPRAZOLE
     Indication: PROPHYLAXIS AGAINST GASTROINTESTINAL ULCER
     Dates: start: 20100303
  6. PREDNISONE. [Concomitant]
     Active Substance: PREDNISONE
     Indication: CROHN^S DISEASE
     Dates: start: 20100304, end: 20100310
  7. PREDNISONE. [Concomitant]
     Active Substance: PREDNISONE
     Dates: start: 20100415, end: 20100421
  8. PREDNISONE. [Concomitant]
     Active Substance: PREDNISONE
     Dates: start: 20100422, end: 20100428
  9. CALTRATE [Concomitant]
     Active Substance: CALCIUM CARBONATE
     Indication: OSTEOPOROSIS PROPHYLAXIS
  10. PREDNISONE. [Concomitant]
     Active Substance: PREDNISONE
     Dates: start: 20100311, end: 20100317
  11. INFLIXIMAB [Concomitant]
     Active Substance: INFLIXIMAB
     Indication: CROHN^S DISEASE
     Dates: start: 20100429, end: 20101021
  12. PREDNISONE. [Concomitant]
     Active Substance: PREDNISONE
     Dates: start: 20100401, end: 20100407
  13. PREDNISONE. [Concomitant]
     Active Substance: PREDNISONE
     Dates: start: 20100429, end: 20100505
  14. ACTONEL [Concomitant]
     Active Substance: RISEDRONATE SODIUM
     Indication: OSTEOPOROSIS
     Dates: start: 20100304
  15. GASTRO-STOP [Concomitant]
     Active Substance: LOPERAMIDE
     Indication: CROHN^S DISEASE
     Dates: start: 20090922
  16. HUMIRA [Suspect]
     Active Substance: ADALIMUMAB
     Dosage: WEEK 2
     Route: 058
  17. VITAMINORUM [Concomitant]
     Indication: VITAMIN SUPPLEMENTATION
     Dates: start: 20100223
  18. HUMIRA [Suspect]
     Active Substance: ADALIMUMAB
     Indication: CROHN^S DISEASE
     Dosage: 160 MG (BASELINE) / 80 MG (WEEK 2)
     Route: 058
     Dates: start: 20090605, end: 20090605
  19. PREDNISONE. [Concomitant]
     Active Substance: PREDNISONE
     Dates: start: 20100506, end: 20100512
  20. ACTONEL [Concomitant]
     Active Substance: RISEDRONATE SODIUM
     Indication: OSTEOPOROSIS PROPHYLAXIS
  21. 6-MP [Concomitant]
     Active Substance: MERCAPTOPURINE
     Indication: CROHN^S DISEASE
     Dates: start: 200501, end: 201012
  22. ZINCAPS [Concomitant]
     Indication: MINERAL SUPPLEMENTATION
     Dates: start: 20100223
  23. HUMIRA [Suspect]
     Active Substance: ADALIMUMAB
     Route: 058
     Dates: end: 20100318
  24. OSTELIN VITAMIN D [Concomitant]
     Indication: OSTEOPOROSIS
     Dates: start: 20100303
  25. 6-MP [Concomitant]
     Active Substance: MERCAPTOPURINE

REACTIONS (2)
  - Squamous cell carcinoma of skin [Recovered/Resolved]
  - Lip squamous cell carcinoma [Recovered/Resolved]

NARRATIVE: CASE EVENT DATE: 20100715
